FAERS Safety Report 5843599-0 (Version None)
Quarter: 2008Q3

REPORT INFORMATION
  Report Type: 
  Country: None (occurrence: None)
  Receive Date: 20080813
  Receipt Date: 20080606
  Transmission Date: 20090109
  Serious: No
  Sender: FDA-Public Use
  Company Number: A0731749A

PATIENT
  Age: 72 Year
  Sex: Male

DRUGS (4)
  1. COREG CR [Suspect]
     Indication: EJECTION FRACTION DECREASED
     Dosage: 80MG PER DAY
     Route: 048
  2. TIKOSYN [Concomitant]
  3. COUMADIN [Concomitant]
  4. DIURETIC [Concomitant]

REACTIONS (4)
  - ANXIETY [None]
  - NIGHT SWEATS [None]
  - PANIC ATTACK [None]
  - TENSION [None]
